FAERS Safety Report 7451449-4 (Version None)
Quarter: 2011Q2

REPORT INFORMATION
  Report Type: 
  Country: None (occurrence: None)
  Receive Date: 20110502
  Receipt Date: 20110425
  Transmission Date: 20111010
  Serious: Yes (Hospitalization)
  Sender: FDA-Public Use
  Company Number: A0920568A

PATIENT
  Age: 86 Year
  Sex: Male

DRUGS (12)
  1. ASPIRIN [Concomitant]
     Dosage: 325MG PER DAY
     Route: 065
  2. VOTRIENT [Suspect]
     Indication: METASTATIC RENAL CELL CARCINOMA
     Dates: start: 20101228
  3. AMBIEN [Concomitant]
  4. PREVACID [Concomitant]
  5. FLOMAX [Concomitant]
  6. ISOSORBIDE DINITRATE [Concomitant]
  7. METOPROLOL SUCCINATE [Concomitant]
     Dosage: 50MG TWICE PER DAY
     Route: 065
  8. PREDNISONE [Concomitant]
     Dosage: 15MG PER DAY
     Route: 065
  9. AMLODIPINE [Concomitant]
  10. BENICAR [Concomitant]
  11. HYDROCHLOROTHIAZIDE [Concomitant]
  12. NITROGLYCERIN [Concomitant]

REACTIONS (24)
  - METASTASES TO MENINGES [None]
  - EYELID PTOSIS [None]
  - RADICULOPATHY [None]
  - MUSCLE ATROPHY [None]
  - DEMYELINATING POLYNEUROPATHY [None]
  - BALANCE DISORDER [None]
  - SPINAL COLUMN STENOSIS [None]
  - GAIT DISTURBANCE [None]
  - OEDEMA PERIPHERAL [None]
  - SENSORY LOSS [None]
  - HYPOAESTHESIA [None]
  - PERIPHERAL SENSORY NEUROPATHY [None]
  - MUSCULAR WEAKNESS [None]
  - GRIP STRENGTH DECREASED [None]
  - MIOSIS [None]
  - PAIN IN EXTREMITY [None]
  - METASTASES TO SPINE [None]
  - PERIPHERAL MOTOR NEUROPATHY [None]
  - DISCOMFORT [None]
  - PERONEAL NERVE PALSY [None]
  - AREFLEXIA [None]
  - PARAESTHESIA [None]
  - PAIN [None]
  - AKINESIA [None]
